FAERS Safety Report 15620522 (Version 2)
Quarter: 2018Q4

REPORT INFORMATION
  Report Type: Report from Study
  Country: US (occurrence: US)
  Receive Date: 20181115
  Receipt Date: 20181225
  Transmission Date: 20190205
  Serious: Yes (Death, Hospitalization, Other)
  Sender: FDA-Public Use
  Company Number: US-ROCHE-2212305

PATIENT
  Age: 42 Year
  Sex: Male

DRUGS (9)
  1. ALPRAZOLAM. [Concomitant]
     Active Substance: ALPRAZOLAM
  2. SOLU-MEDROL [Concomitant]
     Active Substance: METHYLPREDNISOLONE SODIUM SUCCINATE
     Indication: MUSCLE SPASTICITY
     Dosage: SUBSEQUENT DOSES RECEIVED ON 28/AUG/2018, 29/AUG/2018, 30/AUG/2018, 04/SEP/2018, 05/SEP/2018 AND 06/
     Route: 042
     Dates: start: 20180816
  3. BACLOFEN. [Concomitant]
     Active Substance: BACLOFEN
     Indication: MULTIPLE SCLEROSIS
     Route: 065
  4. SIMVASTATIN. [Concomitant]
     Active Substance: SIMVASTATIN
     Indication: MULTIPLE SCLEROSIS
  5. EXCEDRIN (UNITED STATES) [Concomitant]
  6. BIOTIN [Concomitant]
     Active Substance: BIOTIN
     Indication: MULTIPLE SCLEROSIS
  7. VITAMIN D3 [Concomitant]
     Active Substance: CHOLECALCIFEROL
  8. OCREVUS [Suspect]
     Active Substance: OCRELIZUMAB
     Indication: PRIMARY PROGRESSIVE MULTIPLE SCLEROSIS
     Route: 042
     Dates: start: 20180521
  9. OCREVUS [Suspect]
     Active Substance: OCRELIZUMAB
     Indication: RELAPSING MULTIPLE SCLEROSIS
     Dosage: SECOND INFUSION RECEIVED ON 27/DEC/2017
     Route: 042
     Dates: start: 20171211

REACTIONS (5)
  - Pyrexia [Unknown]
  - Migraine [Unknown]
  - Viral infection [Unknown]
  - Infusion related reaction [Unknown]
  - Sudden death [Fatal]

NARRATIVE: CASE EVENT DATE: 20171211
